FAERS Safety Report 22178446 (Version 1)
Quarter: 2023Q2

REPORT INFORMATION
  Report Type: Spontaneous
  Country: FI (occurrence: FI)
  Receive Date: 20230405
  Receipt Date: 20230405
  Transmission Date: 20230722
  Serious: Yes (Hospitalization)
  Sender: FDA-Public Use
  Company Number: None

PATIENT
  Sex: Male

DRUGS (1)
  1. MISOPROSTOL [Suspect]
     Active Substance: MISOPROSTOL
     Indication: Labour induction
     Dosage: 25 MG, DAILY
     Route: 064

REACTIONS (2)
  - Hypotonia neonatal [Recovering/Resolving]
  - Maternal exposure during delivery [Recovering/Resolving]

NARRATIVE: CASE EVENT DATE: 20200823
